FAERS Safety Report 11331713 (Version 1)
Quarter: 2015Q3

REPORT INFORMATION
  Report Type: Spontaneous
  Country: GB (occurrence: GB)
  Receive Date: 20150803
  Receipt Date: 20150803
  Transmission Date: 20151125
  Serious: Yes (Hospitalization, Other)
  Sender: FDA-Public Use
  Company Number: GB-B.I. PHARMACEUTICALS,INC./RIDGEFIELD-2015-BI-41747GD

PATIENT
  Sex: Female

DRUGS (1)
  1. DULCOLAX [Suspect]
     Active Substance: BISACODYL OR DOCUSATE SODIUM
     Indication: PRODUCT USED FOR UNKNOWN INDICATION
     Route: 065

REACTIONS (8)
  - Diarrhoea [Recovered/Resolved]
  - Vomiting [Recovered/Resolved]
  - Malnutrition [Recovered/Resolved]
  - Poor feeding infant [Recovered/Resolved]
  - Cachexia [Recovered/Resolved]
  - Growth retardation [Recovered/Resolved]
  - Developmental delay [Recovered/Resolved]
  - Toxicity to various agents [Recovered/Resolved]
